FAERS Safety Report 4303506-9 (Version None)
Quarter: 2004Q1

REPORT INFORMATION
  Report Type: 
  Country: None (occurrence: None)
  Receive Date: 20040224
  Receipt Date: 20040224
  Transmission Date: 20041129
  Serious: Yes (Other)
  Sender: FDA-Public Use
  Company Number: None

PATIENT
  Age: 24 Year
  Sex: Female
  Weight: 48.9885 kg

DRUGS (1)
  1. REGLAN [Suspect]
     Indication: GASTROINTESTINAL MOTILITY DISORDER
     Dosage: 10 MG TID ORAL
     Route: 048
     Dates: start: 20040114, end: 20040114

REACTIONS (1)
  - EXTRAPYRAMIDAL DISORDER [None]
